FAERS Safety Report 16181615 (Version 2)
Quarter: 2019Q2

REPORT INFORMATION
  Report Type: Not Available
  Country: US (occurrence: US)
  Receive Date: 20190410
  Receipt Date: 20190424
  Transmission Date: 20190711
  Serious: No
  Sender: FDA-Public Use
  Company Number: US-NEUROCRINE BIOSCIENCES INC.-2019NBI00828

PATIENT
  Age: 61 Year
  Sex: Male

DRUGS (17)
  1. MONTELUKAST [Concomitant]
     Active Substance: MONTELUKAST SODIUM
  2. BYSTOLIC [Concomitant]
     Active Substance: NEBIVOLOL HYDROCHLORIDE
  3. LUVOX [Concomitant]
     Active Substance: FLUVOXAMINE MALEATE
  4. LITHIUM. [Concomitant]
     Active Substance: LITHIUM
  5. XANAX [Concomitant]
     Active Substance: ALPRAZOLAM
  6. VITAMIN D2 [Concomitant]
     Active Substance: ERGOCALCIFEROL
  7. OXYCODONE [Concomitant]
     Active Substance: OXYCODONE
  8. OMEGA 3 [Concomitant]
     Active Substance: OMEGA-3 FATTY ACIDS
  9. MORPHINE [Concomitant]
     Active Substance: MORPHINE
  10. CALCIUM [Concomitant]
     Active Substance: CALCIUM
  11. INGREZZA [Suspect]
     Active Substance: VALBENAZINE
     Indication: TARDIVE DYSKINESIA
     Route: 048
     Dates: start: 2019, end: 2019
  12. INGREZZA [Suspect]
     Active Substance: VALBENAZINE
     Route: 048
     Dates: start: 20190107, end: 20190326
  13. NUVIGIL [Concomitant]
     Active Substance: ARMODAFINIL
  14. MYRBETRIQ [Concomitant]
     Active Substance: MIRABEGRON
  15. TRILEPTAL [Concomitant]
     Active Substance: OXCARBAZEPINE
  16. STRATTERA [Concomitant]
     Active Substance: ATOMOXETINE HYDROCHLORIDE
  17. REMERON [Concomitant]
     Active Substance: MIRTAZAPINE

REACTIONS (1)
  - Anxiety [Recovered/Resolved]

NARRATIVE: CASE EVENT DATE: 20190115
